FAERS Safety Report 22266858 (Version 2)
Quarter: 2024Q4

REPORT INFORMATION
  Report Type: Spontaneous
  Country: US (occurrence: US)
  Receive Date: 20230428
  Receipt Date: 20241203
  Transmission Date: 20250114
  Serious: Yes (Hospitalization, Other)
  Sender: PFIZER
  Company Number: US-PFIZER INC-2020024078

PATIENT
  Age: 82 Year
  Sex: Male

DRUGS (1)
  1. XELJANZ XR [Suspect]
     Active Substance: TOFACITINIB CITRATE
     Dosage: 11 MG, DAILY (EVERY MORNING)
     Route: 048

REACTIONS (3)
  - Pneumonia [Unknown]
  - Influenza [Unknown]
  - Candida infection [Unknown]
